FAERS Safety Report 18688472 (Version 1)
Quarter: 2020Q4

REPORT INFORMATION
  Report Type: Report from Study
  Country: CN (occurrence: CN)
  Receive Date: 20201231
  Receipt Date: 20201231
  Transmission Date: 20210114
  Serious: Yes (Other)
  Sender: FDA-Public Use
  Company Number: CN-KYOWAKIRIN-2020BKK022840

PATIENT

DRUGS (7)
  1. EVEROLIMUS. [Suspect]
     Active Substance: EVEROLIMUS
     Indication: HORMONE RECEPTOR POSITIVE BREAST CANCER
     Dosage: 10 MG, QD
     Route: 065
  2. EVEROLIMUS. [Suspect]
     Active Substance: EVEROLIMUS
     Indication: HER2 NEGATIVE BREAST CANCER
     Dosage: 5 MG, QD
     Route: 065
  3. TAMOXIFEN [Suspect]
     Active Substance: TAMOXIFEN
     Indication: HORMONE RECEPTOR POSITIVE BREAST CANCER
     Dosage: 10 MG, QD
     Route: 065
  4. TAMOXIFEN [Suspect]
     Active Substance: TAMOXIFEN
     Indication: HER2 NEGATIVE BREAST CANCER
  5. TOREMIFENE [Suspect]
     Active Substance: TOREMIFENE
     Indication: HORMONE RECEPTOR POSITIVE BREAST CANCER
     Dosage: 60 MG, QD
     Route: 065
  6. TOREMIFENE [Suspect]
     Active Substance: TOREMIFENE
     Indication: HER2 NEGATIVE BREAST CANCER
  7. SODIUM CHLORIDE. [Concomitant]
     Active Substance: SODIUM CHLORIDE
     Indication: PROPHYLAXIS
     Dosage: UNK
     Route: 065

REACTIONS (13)
  - Hyperglycaemia [Unknown]
  - Fatigue [Unknown]
  - Interstitial lung disease [Unknown]
  - Rash [Unknown]
  - Nausea [Unknown]
  - Myelosuppression [Unknown]
  - Anal abscess [Unknown]
  - Pyrexia [Unknown]
  - Diarrhoea [Unknown]
  - Renal impairment [Unknown]
  - Hepatic function abnormal [Unknown]
  - Stomatitis [Unknown]
  - Vomiting [Unknown]
